FAERS Safety Report 9938453 (Version 2)
Quarter: 2014Q1

REPORT INFORMATION
  Report Type: Report from Study
  Country: US (occurrence: US)
  Receive Date: 20140303
  Receipt Date: 20140303
  Transmission Date: 20141002
  Serious: No
  Sender: FDA-Public Use
  Company Number: US-ABBVIE-12P-163-1021747-00

PATIENT
  Age: 62 Year
  Sex: Female

DRUGS (6)
  1. HUMIRA [Suspect]
     Indication: PSORIASIS
     Route: 058
     Dates: start: 20121004, end: 201212
  2. HUMIRA [Suspect]
     Dates: start: 20130110
  3. FAMVIR [Concomitant]
     Indication: PROPHYLAXIS
  4. FAMVIR [Concomitant]
     Indication: EYE DISORDER
  5. FAMVIR [Concomitant]
     Indication: GLAUCOMA
  6. EYE DROPS [Concomitant]
     Indication: GLAUCOMA
     Dosage: TWICE PER DAY TO EACH EYE
     Route: 047

REACTIONS (3)
  - Eye injury [Recovering/Resolving]
  - Nasopharyngitis [Recovering/Resolving]
  - Headache [Recovering/Resolving]
